FAERS Safety Report 7416932-6 (Version None)
Quarter: 2011Q2

REPORT INFORMATION
  Report Type: 
  Country: None (occurrence: None)
  Receive Date: 20110407
  Receipt Date: 20110324
  Transmission Date: 20111010
  Serious: Yes (Hospitalization)
  Sender: FDA-Public Use
  Company Number: TCI2011A01769

PATIENT
  Age: 36 Year
  Sex: Female

DRUGS (8)
  1. CYTARABINE [Concomitant]
  2. METHOTREXATE [Concomitant]
  3. PREDNISOLONE [Concomitant]
  4. ITRIZOLE (ITRACONAZOLE) [Concomitant]
  5. IDARUBICIN HYDROCHLORIDE [Concomitant]
  6. TAKEPRON OD TABLETS 15 (LANSOPRAZOLE) [Suspect]
     Indication: REFLUX OESOPHAGITIS
     Dosage: 30 MG (15 MG, 2 IN 1 D), PER ORAL
     Route: 048
     Dates: start: 20081106, end: 20100610
  7. PROGRAF [Suspect]
     Indication: PROPHYLAXIS AGAINST GRAFT VERSUS HOST DISEASE
     Dosage: 2 MG 91 MG, 2 IN 1 D), PER ORAL
     Route: 048
     Dates: start: 20090701, end: 20100610
  8. CYCLOSPORINE [Concomitant]

REACTIONS (7)
  - HERPES ZOSTER [None]
  - CARDIOMEGALY [None]
  - NO THERAPEUTIC RESPONSE [None]
  - ACUTE GRAFT VERSUS HOST DISEASE IN SKIN [None]
  - DIARRHOEA [None]
  - EOSINOPHILIC PNEUMONIA [None]
  - BRONCHITIS [None]
